FAERS Safety Report 8492474-4 (Version None)
Quarter: 2012Q3

REPORT INFORMATION
  Report Type: 
  Country: None (occurrence: None)
  Receive Date: 20120706
  Receipt Date: 20120622
  Transmission Date: 20120928
  Serious: Yes (Other)
  Sender: FDA-Public Use
  Company Number: JP-ROCHE-1082412

PATIENT
  Sex: Male
  Weight: 65 kg

DRUGS (2)
  1. CISPLATIN [Concomitant]
     Indication: GASTRIC CANCER
     Dosage: DOSAGE IS UNCERTAIN.
     Route: 041
  2. XELODA [Suspect]
     Indication: GASTRIC CANCER
     Route: 048

REACTIONS (9)
  - HYPERTENSION [None]
  - MALAISE [None]
  - DIABETES MELLITUS [None]
  - VISUAL ACUITY REDUCED [None]
  - DECREASED APPETITE [None]
  - OEDEMA [None]
  - CONSTIPATION [None]
  - PIGMENTATION DISORDER [None]
  - RETINAL HAEMORRHAGE [None]
